FAERS Safety Report 8576839-8 (Version None)
Quarter: 2012Q3

REPORT INFORMATION
  Report Type: 
  Country: None (occurrence: None)
  Receive Date: 20120807
  Receipt Date: 20120725
  Transmission Date: 20120928
  Serious: Yes (Death, Other)
  Sender: FDA-Public Use
  Company Number: JP-UCBSA-062895

PATIENT
  Age: 75 Year
  Sex: Male

DRUGS (3)
  1. DEPAKENE [Suspect]
     Dosage: DAILY DOSE: 2 G
     Route: 048
  2. LAMICTAL [Suspect]
     Dosage: DAILY DOSE: 100 MG
     Route: 048
  3. KEPPRA [Suspect]
     Indication: EPILEPSY
     Route: 048
     Dates: start: 20110915, end: 20111020

REACTIONS (2)
  - THROMBOCYTOPENIA [None]
  - CEREBROVASCULAR ACCIDENT [None]
